FAERS Safety Report 18894097 (Version 1)
Quarter: 2021Q1

REPORT INFORMATION
  Report Type: Spontaneous
  Country: JP (occurrence: JP)
  Receive Date: 20210215
  Receipt Date: 20210215
  Transmission Date: 20210420
  Serious: Yes (Death, Other)
  Sender: FDA-Public Use
  Company Number: JP-PFIZER INC-2021123821

PATIENT
  Age: 64 Year
  Sex: Female
  Weight: 49 kg

DRUGS (3)
  1. INLYTA [Suspect]
     Active Substance: AXITINIB
     Dosage: 4 MG, 2X/DAY
  2. NIVOLUMAB [Suspect]
     Active Substance: NIVOLUMAB
     Indication: PREMEDICATION
     Dosage: UNK
  3. IPILIMUMAB [Suspect]
     Active Substance: IPILIMUMAB
     Dosage: UNK

REACTIONS (2)
  - Adrenal insufficiency [Unknown]
  - Death [Fatal]
